FAERS Safety Report 12372508 (Version 2)
Quarter: 2016Q2

REPORT INFORMATION
  Report Type: Spontaneous
  Country: NL (occurrence: NL)
  Receive Date: 20160516
  Receipt Date: 20160608
  Transmission Date: 20160815
  Serious: No
  Sender: FDA-Public Use
  Company Number: NL-TEVA-658221ISR

PATIENT
  Sex: Female

DRUGS (1)
  1. TAMOXIFEN 20MG [Suspect]
     Active Substance: TAMOXIFEN
     Indication: BREAST CANCER
     Dosage: TAMOXIFEN FROM JAR
     Route: 048

REACTIONS (3)
  - Abdominal pain [Unknown]
  - Vaginal haemorrhage [Recovering/Resolving]
  - Product packaging issue [Unknown]
